FAERS Safety Report 6848804-X (Version None)
Quarter: 2010Q3

REPORT INFORMATION
  Report Type: 
  Country: None (occurrence: None)
  Receive Date: 20100716
  Receipt Date: 20070912
  Transmission Date: 20110219
  Serious: No
  Sender: FDA-Public Use
  Company Number: US-PFIZER INC-2007076466

PATIENT
  Sex: Male
  Weight: 104.54 kg

DRUGS (13)
  1. CHANTIX [Suspect]
     Indication: SMOKING CESSATION THERAPY
     Dates: start: 20070906
  2. TIKOSYN [Concomitant]
  3. INSULIN [Concomitant]
  4. COUMADIN [Concomitant]
  5. ALTACE [Concomitant]
  6. POTASSIUM CHLORIDE [Concomitant]
  7. ZETIA [Concomitant]
  8. ACETYLSALICYLIC ACID [Concomitant]
  9. TOLBUTAMIDE [Concomitant]
  10. COREG [Concomitant]
  11. DIGITEK [Concomitant]
  12. NEXIUM [Concomitant]
  13. SPIRONOLACTONE [Concomitant]

REACTIONS (1)
  - TOBACCO USER [None]
